FAERS Safety Report 23460217 (Version 2)
Quarter: 2024Q1

REPORT INFORMATION
  Report Type: Report from Study
  Country: US (occurrence: None)
  Receive Date: 20240131
  Receipt Date: 20240312
  Transmission Date: 20240410
  Serious: Yes (Other)
  Sender: FDA-Public Use
  Company Number: 2024A018674

PATIENT
  Sex: Female

DRUGS (6)
  1. SYMBICORT [Suspect]
     Active Substance: BUDESONIDE\FORMOTEROL FUMARATE DIHYDRATE
     Dosage: 160UG
     Route: 055
  2. IMMUNOGLOBULIN [Concomitant]
  3. AZITHROMYCIN [Concomitant]
     Active Substance: AZITHROMYCIN
  4. CHLOROQUINE [Concomitant]
     Active Substance: CHLOROQUINE
  5. TOCILIZUMAB [Concomitant]
     Active Substance: TOCILIZUMAB
  6. HUMAN PLASMA [Concomitant]
     Active Substance: HUMAN PLASMA

REACTIONS (7)
  - Influenza [Unknown]
  - Illness [Unknown]
  - COVID-19 [Unknown]
  - Cough [Unknown]
  - Dyspnoea [Unknown]
  - Fatigue [Unknown]
  - Visual impairment [Unknown]
